FAERS Safety Report 15949219 (Version 2)
Quarter: 2019Q1

REPORT INFORMATION
  Report Type: Spontaneous
  Country: US (occurrence: US)
  Receive Date: 20190211
  Receipt Date: 20190211
  Transmission Date: 20190417
  Serious: No
  Sender: FDA-Public Use
  Company Number: US-BAXTER-2019BAX002558

PATIENT
  Age: 70 Year
  Sex: Female

DRUGS (1)
  1. DOBUTAMINE HYDROCHLORIDE IN DEXTROSE [Suspect]
     Active Substance: DEXTROSE MONOHYDRATE\DEXTROSE MONOHYDRATE\DOBUTAMINE HYDROCHLORIDE\DOBUTAMINE HYDROCHLORIDE
     Indication: CARDIAC STRESS TEST
     Dosage: DOSE: 1000 MG/250 ML
     Route: 042
     Dates: start: 20190130, end: 20190130

REACTIONS (1)
  - Blood pressure increased [Recovered/Resolved]

NARRATIVE: CASE EVENT DATE: 20190130
